FAERS Safety Report 7222138-6 (Version None)
Quarter: 2011Q1

REPORT INFORMATION
  Report Type: 
  Country: None (occurrence: None)
  Receive Date: 20110112
  Receipt Date: 20110104
  Transmission Date: 20110831
  Serious: Yes (Hospitalization)
  Sender: FDA-Public Use
  Company Number: FR-ASTRAZENECA-2011SE00708

PATIENT
  Age: 65 Year
  Sex: Male

DRUGS (9)
  1. MICOPHENOLIC ACID [Concomitant]
     Route: 065
  2. ROVALCYTE [Suspect]
     Route: 048
     Dates: start: 20101029
  3. SMECTA [Concomitant]
     Route: 065
  4. CELLCEPT [Suspect]
     Route: 048
  5. NEXIUM [Suspect]
     Route: 048
  6. VALGANCICLOVIR HCL [Concomitant]
     Route: 065
  7. CORTANCYL [Suspect]
     Route: 065
  8. PROGRAF [Suspect]
     Route: 048
  9. SPASFON [Suspect]
     Route: 048

REACTIONS (1)
  - LUNG DISORDER [None]
